FAERS Safety Report 9349484 (Version 1)
Quarter: 2013Q2

REPORT INFORMATION
  Report Type: Spontaneous
  Country: GB (occurrence: GB)
  Receive Date: 20130614
  Receipt Date: 20130614
  Transmission Date: 20140414
  Serious: No
  Sender: FDA-Public Use
  Company Number: GB-JNJFOC-20130606878

PATIENT
  Sex: Female

DRUGS (1)
  1. DUROGESIC D- TRANS [Suspect]
     Indication: PRODUCT USED FOR UNKNOWN INDICATION
     Route: 062

REACTIONS (2)
  - Drug administered at inappropriate site [Unknown]
  - Product quality issue [Unknown]
